FAERS Safety Report 18313697 (Version 1)
Quarter: 2020Q3

REPORT INFORMATION
  Report Type: Spontaneous
  Country: IN (occurrence: IN)
  Receive Date: 20200925
  Receipt Date: 20200925
  Transmission Date: 20201103
  Serious: Yes (Hospitalization, Other)
  Sender: FDA-Public Use
  Company Number: IN-ALLERGAN-2036483US

PATIENT
  Sex: Male

DRUGS (2)
  1. FLUOXETINE HCL UNK [Suspect]
     Active Substance: FLUOXETINE HYDROCHLORIDE
     Indication: IMPULSIVE BEHAVIOUR
     Dosage: UNK
  2. FLUOXETINE HCL UNK [Suspect]
     Active Substance: FLUOXETINE HYDROCHLORIDE
     Indication: AGGRESSION

REACTIONS (2)
  - Off label use [Unknown]
  - Mouth haemorrhage [Recovered/Resolved]
